FAERS Safety Report 6363723-3 (Version None)
Quarter: 2009Q3

REPORT INFORMATION
  Report Type: 
  Country: None (occurrence: None)
  Receive Date: 20090919
  Receipt Date: 20090706
  Transmission Date: 20100115
  Serious: No
  Sender: FDA-Public Use
  Company Number: US-ABBOTT-09P-163-0583583-00

PATIENT
  Sex: Female

DRUGS (1)
  1. HUMIRA [Suspect]
     Indication: CROHN'S DISEASE
     Dates: start: 20060512

REACTIONS (11)
  - ERYTHEMA [None]
  - FEELING ABNORMAL [None]
  - INCOHERENT [None]
  - INJECTION SITE ERYTHEMA [None]
  - INJECTION SITE PRURITUS [None]
  - INJECTION SITE SWELLING [None]
  - MEMORY IMPAIRMENT [None]
  - MIGRAINE [None]
  - RASH MACULAR [None]
  - VOMITING [None]
  - WEIGHT DECREASED [None]
